FAERS Safety Report 9709671 (Version 2)
Quarter: 2013Q4

REPORT INFORMATION
  Report Type: Spontaneous
  Country: AR (occurrence: AR)
  Receive Date: 20131126
  Receipt Date: 20131127
  Transmission Date: 20140711
  Serious: Yes (Hospitalization)
  Sender: FDA-Public Use
  Company Number: PHHY2013AR135004

PATIENT
  Age: 97 Year
  Sex: Female

DRUGS (1)
  1. TEGRETOL [Suspect]
     Indication: TREMOR
     Dosage: UNK UKN, UNK
     Route: 048
     Dates: start: 2010

REACTIONS (7)
  - Aphagia [Recovering/Resolving]
  - Eating disorder [Recovering/Resolving]
  - Dehydration [Recovering/Resolving]
  - Underdose [Recovering/Resolving]
  - Somnolence [Recovering/Resolving]
  - Tremor [Recovering/Resolving]
  - Dysphagia [Unknown]
